FAERS Safety Report 8464526 (Version 2)
Quarter: 2013Q1

REPORT INFORMATION
  Report Type: Spontaneous
  Country: US (occurrence: US)
  Receive Date: 20120319
  Receipt Date: 20130314
  Transmission Date: 20140127
  Serious: No
  Sender: FDA-Public Use
  Company Number: US-PFIZER INC-2012068682

PATIENT
  Age: 53 Year
  Sex: Female

DRUGS (17)
  1. ARTHROTEC [Suspect]
     Dosage: 75/200 MG, 4X/DAY
     Route: 048
  2. ARTHROTEC [Suspect]
     Dosage: 75/200 MG-MCG, 1 TABLET ORALLY 2X/DAY
     Route: 048
  3. ABILIFY [Concomitant]
     Dosage: 5 MG, 1X/DAY
     Route: 048
  4. PROZAC [Concomitant]
     Dosage: 60 MG (20MG- 3 IN THE MORNING), 1X/DAY
     Route: 048
  5. TOPROL XL [Concomitant]
     Dosage: 100 MG, 1X/DAY
     Route: 048
  6. HYDROCHLOROTHIAZIDE [Concomitant]
     Dosage: 25 MG, 1X/DAY
     Route: 048
  7. LYRICA [Concomitant]
     Dosage: 75 MG, 2X/DAY
     Route: 048
  8. ZOFRAN [Concomitant]
     Indication: NAUSEA
     Dosage: 4 MG, EVERY 8 HRS AS NEEDED
     Route: 048
  9. COLCRYS [Concomitant]
     Dosage: 0.6 MG, 2X/DAY
     Route: 048
  10. OMEPRAZOLE [Concomitant]
     Dosage: 40 MG, 2X/DAY
     Route: 048
  11. CLONAZEPAM [Concomitant]
     Dosage: 1 MG, 2X/DAY
     Route: 048
  12. LOSARTAN POTASSIUM [Concomitant]
     Dosage: 100 MG, 1X/DAY
     Route: 048
  13. CIPRO [Concomitant]
     Dosage: 500 MG, 2X/DAY (1 EVERY 12HRS)
     Route: 048
  14. ROBAXIN [Concomitant]
     Indication: PAIN
     Dosage: 500 MG, 1 EVERY 8 HRS AS NEEDED
     Route: 048
  15. TRAZODONE HYDROCHLORIDE [Concomitant]
     Dosage: 100 MG, 1X/DAY (1 AT BEDTIME)
     Route: 048
  16. FLEXERIL [Concomitant]
     Dosage: 10 MG, 3X/DAY
     Route: 048
  17. STOOL SOFTENER [Concomitant]
     Dosage: 100 MG, 1 AS NEEDED FOUR TIMES A DAY
     Route: 048

REACTIONS (2)
  - Inappropriate schedule of drug administration [Unknown]
  - Feeling abnormal [Unknown]
